FAERS Safety Report 19402429 (Version 5)
Quarter: 2025Q3

REPORT INFORMATION
  Report Type: Spontaneous
  Country: JP (occurrence: JP)
  Receive Date: 20210611
  Receipt Date: 20250803
  Transmission Date: 20251021
  Serious: Yes (Death, Hospitalization)
  Sender: ALEXION PHARMACEUTICALS
  Company Number: 2021A507139

PATIENT
  Age: 65 Year
  Sex: Female
  Weight: 59 kg

DRUGS (7)
  1. OLAPARIB [Suspect]
     Active Substance: OLAPARIB
  2. FUROSEMIDE [Concomitant]
     Active Substance: FUROSEMIDE
     Indication: Pancreatic carcinoma
  3. PANCRELIPASE [Concomitant]
     Active Substance: PANCRELIPASE
     Indication: Pancreatic carcinoma
  4. CYMBALTA [Concomitant]
     Active Substance: DULOXETINE HYDROCHLORIDE
     Indication: Pancreatic carcinoma
  5. Clostridium butyricum [Concomitant]
     Indication: Pancreatic carcinoma
  6. RABEPRAZOLE SODIUM [Concomitant]
     Active Substance: RABEPRAZOLE SODIUM
     Indication: Pancreatic carcinoma
  7. URSODIOL [Concomitant]
     Active Substance: URSODIOL
     Indication: Pancreatic carcinoma

REACTIONS (3)
  - Obstructive pancreatitis [Fatal]
  - Fatigue [Recovering/Resolving]
  - Malaise [Fatal]

NARRATIVE: CASE EVENT DATE: 20210504
